FAERS Safety Report 5816632-X (Version None)
Quarter: 2008Q3

REPORT INFORMATION
  Report Type: 
  Country: None (occurrence: None)
  Receive Date: 20080721
  Receipt Date: 20080709
  Transmission Date: 20090109
  Serious: Yes (Death, Hospitalization)
  Sender: FDA-Public Use
  Company Number: US-GENENTECH-263134

PATIENT
  Sex: Female

DRUGS (6)
  1. RAPTIVA [Suspect]
     Indication: DERMATITIS
     Dosage: 0.9 ML, 1/WEEK
     Dates: start: 20070222, end: 20071031
  2. TRIAMCINOLON OINTMENT [Concomitant]
     Indication: DRUG USE FOR UNKNOWN INDICATION
     Dosage: UNK
  3. LEVOTHYROXINE SODIUM [Concomitant]
     Indication: DRUG USE FOR UNKNOWN INDICATION
  4. GLYBURIDE [Concomitant]
     Indication: DRUG USE FOR UNKNOWN INDICATION
  5. AVELOX [Concomitant]
     Indication: DRUG USE FOR UNKNOWN INDICATION
  6. DOXEPIN HCL [Concomitant]
     Indication: DRUG USE FOR UNKNOWN INDICATION

REACTIONS (1)
  - LYMPHOMA [None]
